FAERS Safety Report 21281204 (Version 6)
Quarter: 2022Q4

REPORT INFORMATION
  Report Type: Spontaneous
  Country: AU (occurrence: AU)
  Receive Date: 20220901
  Receipt Date: 20221209
  Transmission Date: 20230113
  Serious: Yes (Other)
  Sender: FDA-Public Use
  Company Number: AU-PFIZER INC-202200124068

PATIENT
  Age: 60 Year
  Sex: Male

DRUGS (50)
  1. ELELYSO [Suspect]
     Active Substance: TALIGLUCERASE ALFA
     Indication: Gaucher^s disease
     Dosage: 5200 IU
     Route: 042
     Dates: start: 20210709, end: 20210709
  2. ELELYSO [Suspect]
     Active Substance: TALIGLUCERASE ALFA
     Dosage: 5200 IU
     Route: 042
     Dates: start: 20210723, end: 20210723
  3. ELELYSO [Suspect]
     Active Substance: TALIGLUCERASE ALFA
     Dosage: 5200 IU
     Route: 042
     Dates: start: 20210806, end: 20210806
  4. ELELYSO [Suspect]
     Active Substance: TALIGLUCERASE ALFA
     Dosage: 5200 IU
     Route: 042
     Dates: start: 20210820, end: 20210820
  5. ELELYSO [Suspect]
     Active Substance: TALIGLUCERASE ALFA
     Dosage: 5200 IU
     Route: 042
     Dates: start: 20210906, end: 20210906
  6. ELELYSO [Suspect]
     Active Substance: TALIGLUCERASE ALFA
     Dosage: 5200 IU
     Route: 042
     Dates: start: 20210917, end: 20210917
  7. ELELYSO [Suspect]
     Active Substance: TALIGLUCERASE ALFA
     Dosage: 5200 IU
     Route: 042
     Dates: start: 20210930, end: 20210930
  8. ELELYSO [Suspect]
     Active Substance: TALIGLUCERASE ALFA
     Dosage: 5200 IU
     Route: 042
     Dates: start: 20211015, end: 20211015
  9. ELELYSO [Suspect]
     Active Substance: TALIGLUCERASE ALFA
     Dosage: 5200 IU
     Route: 042
     Dates: start: 20211029, end: 20211029
  10. ELELYSO [Suspect]
     Active Substance: TALIGLUCERASE ALFA
     Dosage: 5200 IU
     Route: 042
     Dates: start: 20211029, end: 20211029
  11. ELELYSO [Suspect]
     Active Substance: TALIGLUCERASE ALFA
     Dosage: 5200 IU
     Route: 042
     Dates: start: 20211112, end: 20211112
  12. ELELYSO [Suspect]
     Active Substance: TALIGLUCERASE ALFA
     Dosage: 5200 IU
     Route: 042
     Dates: start: 20211126, end: 20211126
  13. ELELYSO [Suspect]
     Active Substance: TALIGLUCERASE ALFA
     Dosage: 5200 IU
     Route: 042
     Dates: start: 20211210, end: 20211210
  14. ELELYSO [Suspect]
     Active Substance: TALIGLUCERASE ALFA
     Dosage: 5200 IU
     Route: 042
     Dates: start: 20211210, end: 20211210
  15. ELELYSO [Suspect]
     Active Substance: TALIGLUCERASE ALFA
     Dosage: 5200 IU
     Route: 042
     Dates: start: 20211223, end: 20211223
  16. ELELYSO [Suspect]
     Active Substance: TALIGLUCERASE ALFA
     Dosage: 5200 IU
     Route: 042
     Dates: start: 20220107, end: 20220107
  17. ELELYSO [Suspect]
     Active Substance: TALIGLUCERASE ALFA
     Dosage: 5200 IU
     Route: 042
     Dates: start: 20220121, end: 20220121
  18. ELELYSO [Suspect]
     Active Substance: TALIGLUCERASE ALFA
     Dosage: 5200 IU
     Route: 042
     Dates: start: 20220204, end: 20220204
  19. ELELYSO [Suspect]
     Active Substance: TALIGLUCERASE ALFA
     Dosage: 5600 IU
     Route: 042
     Dates: start: 20220218, end: 20220218
  20. ELELYSO [Suspect]
     Active Substance: TALIGLUCERASE ALFA
     Dosage: 5200 IU
     Route: 042
     Dates: start: 20220304, end: 20220304
  21. ELELYSO [Suspect]
     Active Substance: TALIGLUCERASE ALFA
     Dosage: 5200 IU
     Route: 042
     Dates: start: 20220318, end: 20220318
  22. ELELYSO [Suspect]
     Active Substance: TALIGLUCERASE ALFA
     Dosage: 5200 IU
     Route: 042
     Dates: start: 20220404, end: 20220404
  23. ELELYSO [Suspect]
     Active Substance: TALIGLUCERASE ALFA
     Dosage: 5200 IU
     Route: 042
     Dates: start: 20220419, end: 20220419
  24. ELELYSO [Suspect]
     Active Substance: TALIGLUCERASE ALFA
     Dosage: 5200 IU
     Route: 042
     Dates: start: 20220505, end: 20220505
  25. ELELYSO [Suspect]
     Active Substance: TALIGLUCERASE ALFA
     Dosage: 5600 IU
     Route: 042
     Dates: start: 20160812, end: 20160812
  26. ELELYSO [Suspect]
     Active Substance: TALIGLUCERASE ALFA
     Dosage: 5600 IU
     Route: 042
     Dates: start: 20160812, end: 20160812
  27. ELELYSO [Suspect]
     Active Substance: TALIGLUCERASE ALFA
     Dosage: 5600 IU
     Route: 042
     Dates: start: 20160825
  28. ELELYSO [Suspect]
     Active Substance: TALIGLUCERASE ALFA
     Dosage: 5600 IU
     Route: 042
     Dates: start: 20160825, end: 20160825
  29. ELELYSO [Suspect]
     Active Substance: TALIGLUCERASE ALFA
     Dosage: 5600 IU
     Route: 042
     Dates: start: 20160906, end: 20160906
  30. ELELYSO [Suspect]
     Active Substance: TALIGLUCERASE ALFA
     Dosage: 5600 IU
     Route: 042
     Dates: start: 20160928, end: 20160928
  31. ELELYSO [Suspect]
     Active Substance: TALIGLUCERASE ALFA
     Dosage: 5600 IU
     Route: 042
     Dates: start: 20161005, end: 20161005
  32. ELELYSO [Suspect]
     Active Substance: TALIGLUCERASE ALFA
     Dosage: 5600 IU
     Route: 042
     Dates: start: 20161020
  33. ELELYSO [Suspect]
     Active Substance: TALIGLUCERASE ALFA
     Dosage: 5600 IU
     Route: 042
     Dates: start: 20161020, end: 20161020
  34. ELELYSO [Suspect]
     Active Substance: TALIGLUCERASE ALFA
     Dosage: 5600 IU
     Route: 042
     Dates: start: 20161104
  35. ELELYSO [Suspect]
     Active Substance: TALIGLUCERASE ALFA
     Dosage: 5600 IU
     Route: 042
     Dates: start: 20161104, end: 20161104
  36. ELELYSO [Suspect]
     Active Substance: TALIGLUCERASE ALFA
     Dosage: 5600 IU
     Route: 042
     Dates: start: 20161117
  37. ELELYSO [Suspect]
     Active Substance: TALIGLUCERASE ALFA
     Dosage: 5600 IU
     Route: 042
     Dates: start: 20161117, end: 20161117
  38. ELELYSO [Suspect]
     Active Substance: TALIGLUCERASE ALFA
     Dosage: 5600 IU
     Route: 042
     Dates: start: 20161129
  39. ELELYSO [Suspect]
     Active Substance: TALIGLUCERASE ALFA
     Dosage: 5600 IU
     Route: 042
     Dates: start: 20161129, end: 20161129
  40. ELELYSO [Suspect]
     Active Substance: TALIGLUCERASE ALFA
     Dosage: 5600 IU
     Route: 042
     Dates: start: 20161213
  41. ELELYSO [Suspect]
     Active Substance: TALIGLUCERASE ALFA
     Dosage: 5600 IU
     Route: 042
     Dates: start: 20161213, end: 20161213
  42. ELELYSO [Suspect]
     Active Substance: TALIGLUCERASE ALFA
     Dosage: 5600 IU
     Route: 042
     Dates: start: 20161229
  43. ELELYSO [Suspect]
     Active Substance: TALIGLUCERASE ALFA
     Dosage: 5600 IU
     Route: 042
     Dates: start: 20161229
  44. ELELYSO [Suspect]
     Active Substance: TALIGLUCERASE ALFA
     Dosage: 5600 IU
     Route: 042
     Dates: start: 20161229, end: 20161229
  45. ELELYSO [Suspect]
     Active Substance: TALIGLUCERASE ALFA
     Dosage: 5400 IU
     Route: 042
     Dates: start: 20170712
  46. ELELYSO [Suspect]
     Active Substance: TALIGLUCERASE ALFA
     Dosage: 5400 IU
     Route: 042
     Dates: start: 20170112, end: 20170112
  47. ELELYSO [Suspect]
     Active Substance: TALIGLUCERASE ALFA
     Dosage: 5200 IU
     Route: 042
     Dates: start: 20170203, end: 20170203
  48. ELELYSO [Suspect]
     Active Substance: TALIGLUCERASE ALFA
     Dosage: 5200 IU
     Route: 042
     Dates: start: 20170217, end: 20170217
  49. ELELYSO [Suspect]
     Active Substance: TALIGLUCERASE ALFA
     Dosage: 5200 IU
     Route: 042
     Dates: start: 20170224
  50. ELELYSO [Suspect]
     Active Substance: TALIGLUCERASE ALFA
     Dosage: 5200 IU
     Route: 042
     Dates: start: 20170224

REACTIONS (9)
  - Arrhythmia [Unknown]
  - Blood pressure increased [Recovering/Resolving]
  - Heart rate decreased [Recovering/Resolving]
  - COVID-19 [Unknown]
  - Heart rate irregular [Unknown]
  - Off label use [Unknown]
  - Inappropriate schedule of product administration [Unknown]
  - Dysphonia [Recovered/Resolved]
  - Extrasystoles [Unknown]

NARRATIVE: CASE EVENT DATE: 20210709
